FAERS Safety Report 23436136 (Version 4)
Quarter: 2024Q3

REPORT INFORMATION
  Report Type: Spontaneous
  Country: CA (occurrence: CA)
  Receive Date: 20240124
  Receipt Date: 20240924
  Transmission Date: 20241016
  Serious: Yes (Other)
  Sender: CELLTRION
  Company Number: CA-CELLTRION INC.-2023CA018111

PATIENT

DRUGS (7)
  1. INFLECTRA [Suspect]
     Active Substance: INFLIXIMAB-DYYB
     Indication: Crohn^s disease
     Dosage: 5 MG/KG, W 0, 2, 6 WEEKS THEN EVERY 8 WEEKS
     Route: 042
     Dates: start: 20230829
  2. INFLECTRA [Suspect]
     Active Substance: INFLIXIMAB-DYYB
     Dosage: 5 MG/KG, W 0, 2, 6 WEEKS THEN EVERY 8 WEEKS [350MG, 3 WEEKS AND 3 DAYS (WEEK 2 INDUCTION DOSE)]
     Route: 042
     Dates: start: 20230922
  3. INFLECTRA [Suspect]
     Active Substance: INFLIXIMAB-DYYB
     Dosage: 365 MG, AFTER 4 WEEKS (WEEK 6 OF INDUCTION)
     Route: 042
     Dates: start: 20231017
  4. INFLECTRA [Suspect]
     Active Substance: INFLIXIMAB-DYYB
     Dosage: 5 MG/KG, W 0, 2, 6 WEEKS THEN EVERY 8 WEEKS (360MG, 8 WEEKS AND 2 DAYS)
     Route: 042
     Dates: start: 20231214
  5. INFLECTRA [Suspect]
     Active Substance: INFLIXIMAB-DYYB
     Dosage: 10 MG/KG EVERY 8 WEEK (730MG )
     Route: 042
     Dates: start: 20240206
  6. INFLECTRA [Suspect]
     Active Substance: INFLIXIMAB-DYYB
     Dosage: 10 MG/KG EVERY 8 WEEK
     Route: 042
     Dates: start: 20240801
  7. INFLECTRA [Suspect]
     Active Substance: INFLIXIMAB-DYYB
     Dosage: 750 MG, 6 WEEKS AND 1 DAY (10 MG/KG, EVERY 4 WEEKS)
     Route: 042
     Dates: start: 20240913

REACTIONS (9)
  - Anal abscess [Recovered/Resolved]
  - Abscess drainage [Not Recovered/Not Resolved]
  - Drug level decreased [Unknown]
  - Anal fistula [Recovered/Resolved]
  - Anal fissure [Recovered/Resolved]
  - Fatigue [Recovered/Resolved]
  - Drug level below therapeutic [Unknown]
  - Off label use [Unknown]
  - Inappropriate schedule of product administration [Unknown]

NARRATIVE: CASE EVENT DATE: 20230101
